FAERS Safety Report 21874163 (Version 2)
Quarter: 2023Q1

REPORT INFORMATION
  Report Type: Spontaneous
  Country: US (occurrence: US)
  Receive Date: 20230117
  Receipt Date: 20230126
  Transmission Date: 20230418
  Serious: No
  Sender: FDA-Public Use
  Company Number: US-BAYER-2023A004935

PATIENT
  Sex: Female

DRUGS (1)
  1. MIRALAX [Suspect]
     Active Substance: POLYETHYLENE GLYCOL 3350
     Dosage: A SMALL PORTION OF THE FULL CAP DOSE
     Route: 048
     Dates: start: 20230112, end: 20230112

REACTIONS (2)
  - Product solubility abnormal [None]
  - Incorrect dose administered [None]

NARRATIVE: CASE EVENT DATE: 20230112
